FAERS Safety Report 26110796 (Version 1)
Quarter: 2025Q4

REPORT INFORMATION
  Report Type: Spontaneous
  Country: CH (occurrence: CH)
  Receive Date: 20251202
  Receipt Date: 20251202
  Transmission Date: 20260118
  Serious: Yes (Hospitalization, Other)
  Sender: BAXTER
  Company Number: None

PATIENT
  Age: 59 Year
  Sex: Female
  Weight: 72 kg

DRUGS (3)
  1. CYCLOPHOSPHAMIDE [Suspect]
     Active Substance: CYCLOPHOSPHAMIDE
     Indication: Breast cancer
     Dosage: 1090 MG, TOTAL (STRENGTH: 1090 MG)
     Route: 042
     Dates: start: 20250901, end: 20250901
  2. DOXORUBICIN [Suspect]
     Active Substance: DOXORUBICIN
     Indication: Breast cancer
     Dosage: 109 MG, TOTAL (STRENGTH: 109 MG)
     Route: 042
     Dates: start: 20250901, end: 20250901
  3. Eltroxin lf [Concomitant]
     Indication: Papillary thyroid cancer
     Dosage: 75 UG, 24 HRS
     Route: 048

REACTIONS (2)
  - Cystitis [Recovering/Resolving]
  - Neutropenia [Recovered/Resolved]

NARRATIVE: CASE EVENT DATE: 20250907
